FAERS Safety Report 8504981-6 (Version None)
Quarter: 2012Q3

REPORT INFORMATION
  Report Type: 
  Country: None (occurrence: None)
  Receive Date: 20120702
  Receipt Date: 20110819
  Transmission Date: 20120928
  Serious: Yes (Hospitalization)
  Sender: FDA-Public Use
  Company Number: 2012AP001912

PATIENT
  Age: 75 Year
  Sex: Male

DRUGS (5)
  1. TICLOPIDINE HYDROCHLORIDE [Suspect]
     Dosage: 250 MG;BID
  2. CIMETIDINE [Suspect]
     Indication: GASTRODUODENAL ULCER
  3. CITALOPRAM HYDROBROMIDE [Suspect]
     Indication: DEMENTIA ALZHEIMER'S TYPE
     Dosage: 20 MG;QD
  4. DONEPEZIL HCL [Suspect]
     Dosage: 10 MG;QD
  5. QUETIAPINE FUMARATE [Suspect]
     Dosage: 100 MG;BID

REACTIONS (6)
  - ELECTROENCEPHALOGRAM ABNORMAL [None]
  - CEREBRAL ATROPHY [None]
  - BLOOD GLUCOSE INCREASED [None]
  - DUODENAL ULCER HAEMORRHAGE [None]
  - DRUG INTERACTION [None]
  - SEROTONIN SYNDROME [None]
